FAERS Safety Report 23971169 (Version 4)
Quarter: 2024Q2

REPORT INFORMATION
  Report Type: Spontaneous
  Country: GB (occurrence: GB)
  Receive Date: 20240613
  Receipt Date: 20240627
  Transmission Date: 20240716
  Serious: Yes (Hospitalization)
  Sender: FDA-Public Use
  Company Number: GB-MYLANLABS-2024M1053053

PATIENT
  Age: 27 Year
  Sex: Male
  Weight: 81 kg

DRUGS (1)
  1. CLOZARIL [Suspect]
     Active Substance: CLOZAPINE
     Indication: Schizophrenia
     Dosage: 150 MILLIGRAM, BID
     Route: 048
     Dates: start: 20221004, end: 20240610

REACTIONS (9)
  - Splenic vein thrombosis [Unknown]
  - Illness [Unknown]
  - Surgery [Recovered/Resolved]
  - Colitis [Unknown]
  - Eosinophil count decreased [Recovering/Resolving]
  - Platelet count decreased [Recovering/Resolving]
  - White blood cell count decreased [Recovering/Resolving]
  - Haemoglobin decreased [Recovered/Resolved]
  - Neutrophil count decreased [Recovered/Resolved]

NARRATIVE: CASE EVENT DATE: 20240501
